FAERS Safety Report 5793999-2 (Version None)
Quarter: 2008Q2

REPORT INFORMATION
  Report Type: 
  Country: None (occurrence: None)
  Receive Date: 20080627
  Receipt Date: 20080616
  Transmission Date: 20081010
  Serious: Yes (Death, Other)
  Sender: FDA-Public Use
  Company Number: US-PFIZER INC-2007076178

PATIENT
  Sex: Male
  Weight: 92.5 kg

DRUGS (6)
  1. CHANTIX [Suspect]
     Indication: SMOKING CESSATION THERAPY
     Dates: start: 20070713, end: 20070901
  2. CHANTIX [Suspect]
     Indication: TOBACCO USER
  3. ZYPREXA [Concomitant]
     Indication: SCHIZOPHRENIA, PARANOID TYPE
  4. HALOPERIDOL [Concomitant]
     Indication: SCHIZOPHRENIA, PARANOID TYPE
  5. MIRTAZAPINE [Concomitant]
  6. TRAZODONE HCL [Concomitant]
     Indication: SCHIZOPHRENIA, PARANOID TYPE

REACTIONS (2)
  - MALIGNANT LYMPHOID NEOPLASM [None]
  - WEIGHT INCREASED [None]
